FAERS Safety Report 19942845 (Version 1)
Quarter: 2021Q4

REPORT INFORMATION
  Report Type: Spontaneous
  Country: US (occurrence: US)
  Receive Date: 20211011
  Receipt Date: 20211011
  Transmission Date: 20220304
  Serious: No
  Sender: FDA-Public Use
  Company Number: None

PATIENT
  Age: 81 Year
  Sex: Female
  Weight: 54 kg

DRUGS (9)
  1. DORZOLAMIDE HYDROCHLORIDE\TIMOLOL MALEATE [Suspect]
     Active Substance: DORZOLAMIDE HYDROCHLORIDE\TIMOLOL MALEATE
     Indication: Glaucoma
     Dosage: ?          QUANTITY:1 DROP(S);
     Route: 047
  2. TRAVOPROST [Concomitant]
     Active Substance: TRAVOPROST
  3. RHOPRESSA [Concomitant]
     Active Substance: NETARSUDIL MESYLATE
  4. OMEPRAZOLE [Concomitant]
     Active Substance: OMEPRAZOLE
  5. BUPROPION [Concomitant]
     Active Substance: BUPROPION
  6. MINERALS\VITAMINS [Concomitant]
     Active Substance: MINERALS\VITAMINS
  7. VITAMIN D NOS [Concomitant]
     Active Substance: VITAMIN D NOS
  8. NICOTINAMIDE 500 MG [Concomitant]
  9. MEDICINAL CANNABIS CAPSULES [Concomitant]

REACTIONS (3)
  - Administration site pain [None]
  - Administration site irritation [None]
  - Reaction to preservatives [None]

NARRATIVE: CASE EVENT DATE: 20210701
